FAERS Safety Report 13096338 (Version 1)
Quarter: 2017Q1

REPORT INFORMATION
  Report Type: Spontaneous
  Country: US (occurrence: US)
  Receive Date: 20170106
  Receipt Date: 20170106
  Transmission Date: 20170428
  Serious: Yes (Hospitalization)
  Sender: FDA-Public Use
  Company Number: None

PATIENT
  Age: 46 Year
  Sex: Female
  Weight: 109.3 kg

DRUGS (5)
  1. DAUNORUBICIN [Suspect]
     Active Substance: DAUNORUBICIN
     Dates: end: 20161204
  2. CYTARABINE. [Suspect]
     Active Substance: CYTARABINE
     Dates: end: 20161204
  3. SYMPTOMATIC ANEMIA [Concomitant]
  4. ETOPOSIDE (VP-16) [Suspect]
     Active Substance: ETOPOSIDE
     Dates: end: 20161211
  5. SODIUM CHLORIDE. [Concomitant]
     Active Substance: SODIUM CHLORIDE

REACTIONS (9)
  - Renal failure [None]
  - Supraventricular tachycardia [None]
  - Tachycardia [None]
  - Localised oedema [None]
  - Thrombosis in device [None]
  - Tachypnoea [None]
  - Pyrexia [None]
  - Sepsis [None]
  - Hypoxia [None]

NARRATIVE: CASE EVENT DATE: 20161221
